FAERS Safety Report 4366860-8 (Version None)
Quarter: 2004Q2

REPORT INFORMATION
  Report Type: 
  Country: None (occurrence: None)
  Receive Date: 20040524
  Receipt Date: 20040517
  Transmission Date: 20050107
  Serious: Yes (Life-Threatening, Hospitalization)
  Sender: FDA-Public Use
  Company Number: 2004-04-1262

PATIENT
  Age: 41 Year
  Sex: Male
  Weight: 102.0593 kg

DRUGS (4)
  1. PEG-INTRON [Suspect]
     Indication: HEPATITIS C
     Dosage: 150 MCG QWK SUBCUTANEOUS
     Route: 058
     Dates: start: 20030905, end: 20040319
  2. REBETOL [Suspect]
     Indication: HEPATITIS C
     Dosage: 1200 MG QD ORAL
     Route: 048
     Dates: start: 20030905, end: 20040326
  3. TYLENOL [Concomitant]
  4. MOTRIN [Concomitant]

REACTIONS (2)
  - PULMONARY EMBOLISM [None]
  - THROMBOPHLEBITIS [None]
